FAERS Safety Report 12205170 (Version 1)
Quarter: 2016Q1

REPORT INFORMATION
  Report Type: Spontaneous
  Country: US (occurrence: US)
  Receive Date: 20160323
  Receipt Date: 20160323
  Transmission Date: 20160526
  Serious: No
  Sender: FDA-Public Use
  Company Number: US-MEDA-2015040012

PATIENT
  Age: 44 Year
  Sex: Female

DRUGS (2)
  1. AEROSPAN [Suspect]
     Active Substance: FLUNISOLIDE
  2. AEROSPAN [Suspect]
     Active Substance: FLUNISOLIDE

REACTIONS (1)
  - Urticaria [Unknown]
